FAERS Safety Report 6187713-9 (Version None)
Quarter: 2009Q2

REPORT INFORMATION
  Report Type: 
  Country: None (occurrence: None)
  Receive Date: 20090513
  Receipt Date: 20090507
  Transmission Date: 20091009
  Serious: Yes (Other)
  Sender: FDA-Public Use
  Company Number: US-ASTRAZENECA-2009UW11640

PATIENT
  Age: 57 Year
  Sex: Female
  Weight: 183 kg

DRUGS (5)
  1. ARIMIDEX [Suspect]
     Indication: BREAST CANCER FEMALE
     Route: 048
  2. TRIAMTERENE [Concomitant]
  3. DIOVAN [Concomitant]
  4. FOLIC ACID [Concomitant]
  5. LOVAZA [Concomitant]

REACTIONS (2)
  - JOINT STIFFNESS [None]
  - NEUROPATHY PERIPHERAL [None]
